FAERS Safety Report 5050541-1 (Version None)
Quarter: 2006Q3

REPORT INFORMATION
  Report Type: 
  Country: None (occurrence: None)
  Receive Date: 20060707
  Receipt Date: 20060628
  Transmission Date: 20061208
  Serious: No
  Sender: FDA-Public Use
  Company Number: 2006-142849-NL

PATIENT
  Age: 60 Year
  Sex: Female

DRUGS (7)
  1. VECURONIUM BROMIDE [Suspect]
     Indication: INDUCTION OF ANAESTHESIA
     Dosage: 0.1 MG/KG ONCE
     Route: 042
  2. SEVOFLURANE [Suspect]
     Indication: MAINTENANCE OF ANAESTHESIA
     Route: 055
  3. PROPOFOL [Concomitant]
  4. NITROUS OXIDE W/ OXYGEN [Concomitant]
  5. EPHEDRINE [Concomitant]
  6. NEOSTIGMINE [Concomitant]
  7. ATROPINE [Concomitant]

REACTIONS (1)
  - AIRWAY COMPLICATION OF ANAESTHESIA [None]
